FAERS Safety Report 12137054 (Version 1)
Quarter: 2016Q1

REPORT INFORMATION
  Report Type: Spontaneous
  Country: US (occurrence: None)
  Receive Date: 20160301
  Receipt Date: 20160301
  Transmission Date: 20160526
  Serious: Yes (Other)
  Sender: FDA-Public Use
  Company Number: None

PATIENT
  Age: 76 Year
  Sex: Female
  Weight: 46.27 kg

DRUGS (2)
  1. LISINOPRIL. [Concomitant]
     Active Substance: LISINOPRIL
  2. BALSALAZIDE DISODIUM. [Suspect]
     Active Substance: BALSALAZIDE DISODIUM
     Indication: IRRITABLE BOWEL SYNDROME
     Dosage: 2 PILLS TWICE DAILY TAKEN BY MOUTH
     Route: 048

REACTIONS (2)
  - Insomnia [None]
  - Off label use [None]

NARRATIVE: CASE EVENT DATE: 20160220
